FAERS Safety Report 9046519 (Version 1)
Quarter: 2013Q1

REPORT INFORMATION
  Report Type: Spontaneous
  Country: US (occurrence: None)
  Receive Date: 20130128
  Receipt Date: 20130128
  Transmission Date: 20140127
  Serious: Yes (Other)
  Sender: FDA-Public Use
  Company Number: None

PATIENT
  Age: 68 Year
  Sex: Male

DRUGS (1)
  1. LIPITOR [Suspect]
     Indication: VENTRICULAR TACHYCARDIA
     Dosage: 80 MG ONE TABLET DAILY PO
     Route: 048
     Dates: start: 20120320, end: 20121102

REACTIONS (3)
  - Hypopnoea [None]
  - Sleep apnoea syndrome [None]
  - Oxygen saturation decreased [None]
